FAERS Safety Report 18546038 (Version 5)
Quarter: 2021Q3

REPORT INFORMATION
  Report Type: Report from Study
  Country: US (occurrence: US)
  Receive Date: 20201125
  Receipt Date: 20210816
  Transmission Date: 20211014
  Serious: Yes (Hospitalization, Other)
  Sender: FDA-Public Use
  Company Number: US-SHIRE-US202030724

PATIENT
  Age: 53 Year
  Sex: Female

DRUGS (12)
  1. TEDUGLUTIDE [Suspect]
     Active Substance: TEDUGLUTIDE
     Indication: SHORT-BOWEL SYNDROME
     Dosage: 2.3 MILLIGRAM, QD
     Route: 058
     Dates: start: 20200227
  2. TEDUGLUTIDE [Suspect]
     Active Substance: TEDUGLUTIDE
     Indication: SHORT-BOWEL SYNDROME
     Dosage: 2.3 MILLIGRAM, QD
     Route: 058
     Dates: start: 20200227
  3. TEDUGLUTIDE [Suspect]
     Active Substance: TEDUGLUTIDE
     Dosage: 2.3MILLIGRAM,QD
     Route: 058
     Dates: start: 20200213
  4. TEDUGLUTIDE [Suspect]
     Active Substance: TEDUGLUTIDE
     Dosage: 2.3MILLIGRAM,QD
     Route: 058
     Dates: start: 20200213
  5. TEDUGLUTIDE [Suspect]
     Active Substance: TEDUGLUTIDE
     Dosage: 2.3MILLIGRAM,QD
     Route: 058
     Dates: start: 20200213
  6. TEDUGLUTIDE [Suspect]
     Active Substance: TEDUGLUTIDE
     Dosage: 2.3 MILLIGRAM , QD
     Route: 058
     Dates: start: 20200211
  7. TEDUGLUTIDE [Suspect]
     Active Substance: TEDUGLUTIDE
     Indication: SHORT-BOWEL SYNDROME
     Dosage: 2.3 MILLIGRAM, QD
     Route: 058
     Dates: start: 20200227
  8. TEDUGLUTIDE [Suspect]
     Active Substance: TEDUGLUTIDE
     Dosage: 2.3 MILLIGRAM , QD
     Route: 058
     Dates: start: 20200211
  9. TEDUGLUTIDE [Suspect]
     Active Substance: TEDUGLUTIDE
     Dosage: 2.3MILLIGRAM,QD
     Route: 058
     Dates: start: 20200213
  10. TEDUGLUTIDE [Suspect]
     Active Substance: TEDUGLUTIDE
     Dosage: 2.3 MILLIGRAM , QD
     Route: 058
     Dates: start: 20200211
  11. TEDUGLUTIDE [Suspect]
     Active Substance: TEDUGLUTIDE
     Indication: SHORT-BOWEL SYNDROME
     Dosage: 2.3 MILLIGRAM, QD
     Route: 058
     Dates: start: 20200227
  12. TEDUGLUTIDE [Suspect]
     Active Substance: TEDUGLUTIDE
     Dosage: 2.3 MILLIGRAM , QD
     Route: 058
     Dates: start: 20200211

REACTIONS (6)
  - Device related sepsis [Unknown]
  - Hospitalisation [Unknown]
  - Gastrointestinal perforation [Unknown]
  - Gastrointestinal haemorrhage [Unknown]
  - Intervertebral disc protrusion [Unknown]
  - Vascular device infection [Unknown]

NARRATIVE: CASE EVENT DATE: 20201215
